FAERS Safety Report 9551595 (Version 1)
Quarter: 2013Q3

REPORT INFORMATION
  Report Type: Spontaneous
  Country: US (occurrence: None)
  Receive Date: 20130724
  Receipt Date: 20130724
  Transmission Date: 20140515
  Serious: Yes (Disabling)
  Sender: FDA-Public Use
  Company Number: PHEH2013US006159

PATIENT
  Age: 78 Year
  Sex: Female

DRUGS (10)
  1. AFINITOR (RAD) TABLET, 10MG [Suspect]
     Indication: BREAST CANCER
     Route: 048
     Dates: start: 20130122, end: 20130220
  2. CALCIUM + VIT D CALCIUM CARBONATE, VITAMIN D NOS) [Concomitant]
  3. AROMASIN (EXEMESTANE) [Concomitant]
  4. CLARITIN (LORATADINE) [Concomitant]
  5. IMODIUM AD (LOPERAMIDE HYDROCHLORIDE) [Concomitant]
  6. LACTAID (TILACTASE) [Concomitant]
  7. LOTREL (AMLODIPINE BESILATE, BENAZEPRIL HYDROCHLORIDE) [Concomitant]
  8. PRILOSEC [Concomitant]
  9. SYNTHROID (LEVOTHYROXINE SODIUM) [Concomitant]
  10. VITA D (COLECALCIFEROL) [Concomitant]

REACTIONS (2)
  - Diarrhoea [None]
  - Malabsorption [None]
